FAERS Safety Report 6248186-0 (Version None)
Quarter: 2009Q2

REPORT INFORMATION
  Report Type: 
  Country: None (occurrence: None)
  Receive Date: 20090629
  Receipt Date: 20090618
  Transmission Date: 20091009
  Serious: Yes (Other)
  Sender: FDA-Public Use
  Company Number: IE-BAYER-200912393BNE

PATIENT
  Sex: Male

DRUGS (2)
  1. AVELOX [Suspect]
     Indication: PNEUMONIA
     Route: 048
     Dates: start: 20090414
  2. CLOROM [Suspect]
     Indication: PNEUMONIA
     Dosage: TOTAL DAILY DOSE: 1000 MG
     Route: 048
     Dates: start: 20090414

REACTIONS (5)
  - AFFECT LABILITY [None]
  - CRYING [None]
  - HALLUCINATION [None]
  - HEART RATE INCREASED [None]
  - SOMNAMBULISM [None]
